FAERS Safety Report 23243154 (Version 1)
Quarter: 2023Q4

REPORT INFORMATION
  Report Type: Report from Study
  Country: US (occurrence: US)
  Receive Date: 20231130
  Receipt Date: 20231130
  Transmission Date: 20240110
  Serious: No
  Sender: FDA-Public Use
  Company Number: US-ALXN-A202305649

PATIENT
  Sex: Male

DRUGS (2)
  1. ULTOMIRIS [Suspect]
     Active Substance: RAVULIZUMAB-CWVZ
     Indication: Myasthenia gravis
     Dosage: UNK
     Route: 065
     Dates: start: 20230420
  2. PREDNISONE [Concomitant]
     Active Substance: PREDNISONE
     Indication: Product used for unknown indication
     Dosage: UNK
     Route: 065

REACTIONS (12)
  - Productive cough [Unknown]
  - Musculoskeletal discomfort [Unknown]
  - Eye irritation [Unknown]
  - Pain [Unknown]
  - Blood pressure increased [Unknown]
  - Stress [Unknown]
  - Ocular hyperaemia [Unknown]
  - Muscle fatigue [Unknown]
  - Musculoskeletal stiffness [Unknown]
  - Sluggishness [Unknown]
  - Hunger [Unknown]
  - Fatigue [Unknown]

NARRATIVE: CASE EVENT DATE: 20230517
